FAERS Safety Report 19145350 (Version 1)
Quarter: 2021Q2

REPORT INFORMATION
  Report Type: Spontaneous
  Country: US (occurrence: US)
  Receive Date: 20210416
  Receipt Date: 20210416
  Transmission Date: 20210717
  Serious: Yes (Hospitalization)
  Sender: FDA-Public Use
  Company Number: None

PATIENT
  Age: 63 Year
  Sex: Female
  Weight: 53.55 kg

DRUGS (10)
  1. PROAMITINE [Concomitant]
     Dates: start: 20170815
  2. OMEPRAZOLE. [Concomitant]
     Active Substance: OMEPRAZOLE
     Dates: start: 20200512
  3. ASPIRIN. [Concomitant]
     Active Substance: ASPIRIN
     Dates: start: 20170825
  4. BAMLANIVIMAB/ETESEVIMAB [Suspect]
     Active Substance: BAMLANIVIMAB\ETESEVIMAB
     Indication: COVID-19
     Dosage: ?          OTHER FREQUENCY:ONCE;?
     Route: 041
     Dates: start: 20210407, end: 20210407
  5. VITAMIN B6 [Concomitant]
     Active Substance: PYRIDOXINE HYDROCHLORIDE
     Dates: start: 20200918
  6. LEVOTHYROXINE. [Concomitant]
     Active Substance: LEVOTHYROXINE
     Dates: start: 20171109
  7. ACYCLOVIR. [Concomitant]
     Active Substance: ACYCLOVIR
     Dates: start: 20200214
  8. PREGABLIN [Concomitant]
     Active Substance: PREGABALIN
     Dates: start: 20200928
  9. TORSEMIDE. [Concomitant]
     Active Substance: TORSEMIDE
     Dates: start: 20200904
  10. THERAPEUTIC MULTIVITAMIN [Concomitant]
     Dates: start: 20170815

REACTIONS (13)
  - Hypocalcaemia [None]
  - Dehydration [None]
  - Staphylococcal infection [None]
  - Blood culture positive [None]
  - Bacterial infection [None]
  - Pneumonia bacterial [None]
  - Clostridium test positive [None]
  - Leukocytosis [None]
  - Blood alkaline phosphatase increased [None]
  - Platelet count decreased [None]
  - Device related infection [None]
  - Productive cough [None]
  - Acute kidney injury [None]

NARRATIVE: CASE EVENT DATE: 20210412
